FAERS Safety Report 13736793 (Version 1)
Quarter: 2017Q3

REPORT INFORMATION
  Report Type: Spontaneous
  Country: GB (occurrence: GB)
  Receive Date: 20170710
  Receipt Date: 20170710
  Transmission Date: 20171127
  Serious: Yes (Other)
  Sender: FDA-Public Use
  Company Number: GB-BAYER-2017-128921

PATIENT
  Age: 43 Year
  Sex: Female
  Weight: 63 kg

DRUGS (3)
  1. NORETHISTERONE [Concomitant]
     Active Substance: NORETHINDRONE
  2. CETIRIZINE [Concomitant]
     Active Substance: CETIRIZINE HYDROCHLORIDE
  3. MIRENA [Suspect]
     Active Substance: LEVONORGESTREL
     Indication: MENORRHAGIA
     Dosage: 20 MCG/24HR, CONT
     Route: 015
     Dates: start: 20170124, end: 20170508

REACTIONS (5)
  - Mood altered [Recovered/Resolved with Sequelae]
  - Neurofibromatosis [Recovered/Resolved with Sequelae]
  - Pruritus [Recovered/Resolved with Sequelae]
  - Chest pain [Unknown]
  - Skin irritation [Recovered/Resolved with Sequelae]

NARRATIVE: CASE EVENT DATE: 20170126
